FAERS Safety Report 21016401 (Version 1)
Quarter: 2022Q2

REPORT INFORMATION
  Report Type: Spontaneous
  Country: US (occurrence: None)
  Receive Date: 20220627
  Receipt Date: 20220627
  Transmission Date: 20220721
  Serious: No
  Sender: FDA-Public Use
  Company Number: None

PATIENT
  Age: 65 Year
  Sex: Female
  Weight: 158.9 kg

DRUGS (22)
  1. CAPECITABINE [Suspect]
     Active Substance: CAPECITABINE
     Indication: Breast cancer female
     Dosage: FREQUENCY : TWICE A DAY;?
     Route: 048
     Dates: start: 20210910
  2. ALLOPURINOL [Concomitant]
     Active Substance: ALLOPURINOL
  3. ASCORBIC ACID [Concomitant]
     Active Substance: ASCORBIC ACID
  4. ASPIRIN [Concomitant]
     Active Substance: ASPIRIN
  5. CARVEDIOLOL [Concomitant]
  6. CPHALEXIN [Concomitant]
  7. CRANBERRY [Concomitant]
     Active Substance: CRANBERRY
  8. ENTRESTO [Concomitant]
     Active Substance: SACUBITRIL\VALSARTAN
  9. LOPERAMIDE [Concomitant]
     Active Substance: LOPERAMIDE
  10. MELATONIN [Concomitant]
     Active Substance: MELATONIN
  11. METFORMIN [Concomitant]
     Active Substance: METFORMIN HYDROCHLORIDE
  12. MYRBETRIQ [Concomitant]
     Active Substance: MIRABEGRON
  13. NITROFURANTOIN [Concomitant]
     Active Substance: NITROFURANTOIN
  14. ONDANSETRON [Concomitant]
     Active Substance: ONDANSETRON
  15. PRAVASTATIN [Concomitant]
     Active Substance: PRAVASTATIN
  16. PREDNISONE [Concomitant]
     Active Substance: PREDNISONE
  17. TRAMADOL [Concomitant]
     Active Substance: TRAMADOL
  18. TRAIMCINOLONE [Concomitant]
  19. HERBALS\TURMERIC [Concomitant]
     Active Substance: HERBALS\TURMERIC
  20. VITAMIN B COMPLEX [Concomitant]
     Active Substance: CYANOCOBALAMIN\DEXPANTHENOL\NIACINAMIDE\PYRIDOXINE HYDROCHLORIDE\RIBOFLAVIN 5^-PHOSPHATE SODIUM\THIA
  21. VITAMIN D3 [Concomitant]
     Active Substance: CHOLECALCIFEROL
  22. ZINC [Concomitant]
     Active Substance: ZINC

REACTIONS (2)
  - COVID-19 [None]
  - Therapy interrupted [None]
